FAERS Safety Report 7339064-4 (Version None)
Quarter: 2011Q1

REPORT INFORMATION
  Report Type: 
  Country: None (occurrence: None)
  Receive Date: 20110308
  Receipt Date: 20091122
  Transmission Date: 20110831
  Serious: Yes (Death, Other)
  Sender: FDA-Public Use
  Company Number: US-BAYER-200940599NA

PATIENT
  Sex: Female
  Weight: 87.528 kg

DRUGS (17)
  1. PLAVIX [Concomitant]
     Dosage: 75 MG, QD
     Route: 048
  2. LASIX [Concomitant]
     Dosage: 40 MG, QD
     Route: 048
  3. OPTIRAY 350 [Concomitant]
     Indication: ANGIOGRAM
     Dosage: 70 ML, UNK
     Dates: start: 20050106, end: 20050106
  4. NITROGLYCERIN [Concomitant]
     Dosage: UNK UNK, PRN
  5. HYDRALAZINE [Concomitant]
     Dosage: 50 MG, QD
     Route: 048
  6. LIPITOR [Concomitant]
     Dosage: 80 MG, QD
     Route: 048
  7. COUMADIN [Concomitant]
     Dosage: 4 MG, QD
     Route: 048
  8. VASOTEC [Concomitant]
     Dosage: 20 MG, BID
     Route: 048
  9. ISOSORBIDE DINITRATE [Concomitant]
     Dosage: 30 MG, QD
     Route: 048
  10. TRASYLOL [Suspect]
     Indication: CORONARY ARTERY BYPASS
     Route: 042
     Dates: start: 20050101
  11. NEURONTIN [Concomitant]
     Dosage: 300 MG, TID
     Route: 048
  12. COREG [Concomitant]
     Dosage: 6.25 MG, BID
     Route: 048
  13. IMDUR [Concomitant]
     Dosage: 30 MG, QD
     Route: 048
  14. DIABETA [Concomitant]
     Dosage: 5 MG, BID
     Route: 048
  15. MUCOMYST [Concomitant]
     Dosage: UNK
     Dates: start: 20050101, end: 20050101
  16. XANAX [Concomitant]
     Dosage: 0.5 MG, BID
     Route: 048
  17. WELLBUTRIN SR [Concomitant]
     Dosage: 150 MG, BID
     Route: 048

REACTIONS (13)
  - ANXIETY [None]
  - STRESS [None]
  - PAIN [None]
  - ANHEDONIA [None]
  - MULTI-ORGAN FAILURE [None]
  - FEAR [None]
  - INJURY [None]
  - DEATH [None]
  - RENAL FAILURE [None]
  - RENAL IMPAIRMENT [None]
  - RENAL INJURY [None]
  - UNEVALUABLE EVENT [None]
  - EMOTIONAL DISTRESS [None]
